FAERS Safety Report 9499142 (Version 1)
Quarter: 2013Q3

REPORT INFORMATION
  Report Type: Spontaneous
  Country: AU (occurrence: AU)
  Receive Date: 20130905
  Receipt Date: 20130905
  Transmission Date: 20140515
  Serious: Yes (Hospitalization)
  Sender: FDA-Public Use
  Company Number: AU-ABBOTT-13X-008-1138697-00

PATIENT
  Age: 61 Year
  Sex: Female

DRUGS (1)
  1. CREON [Suspect]
     Indication: PRODUCT USED FOR UNKNOWN INDICATION
     Dosage: 40,000U PER MEAL AND 25,000 UNITS FOR A SNACK

REACTIONS (8)
  - Pancreatectomy [Unknown]
  - Splenectomy [Unknown]
  - Renal disorder [Unknown]
  - Vomiting [Not Recovered/Not Resolved]
  - Hypophagia [Not Recovered/Not Resolved]
  - Drug dispensing error [Unknown]
  - Wrong technique in drug usage process [Unknown]
  - Nausea [Unknown]
